FAERS Safety Report 6525564-3 (Version None)
Quarter: 2009Q4

REPORT INFORMATION
  Report Type: 
  Country: None (occurrence: None)
  Receive Date: 20091214
  Receipt Date: 20090120
  Transmission Date: 20100525
  Serious: Yes (Other)
  Sender: FDA-Public Use
  Company Number: 609741

PATIENT
  Age: 61 Year
  Sex: Female

DRUGS (2)
  1. PEGASYS [Suspect]
     Indication: HEPATITIS C
     Dates: start: 20040101, end: 20040101
  2. RIBAVIRIN [Suspect]
     Indication: HEPATITIS C
     Dates: start: 20040101

REACTIONS (1)
  - RED BLOOD CELL COUNT DECREASED [None]
